FAERS Safety Report 7206411-3 (Version None)
Quarter: 2011Q1

REPORT INFORMATION
  Report Type: 
  Country: None (occurrence: None)
  Receive Date: 20110103
  Receipt Date: 20110103
  Transmission Date: 20110831
  Serious: Yes (Hospitalization, Other)
  Sender: FDA-Public Use
  Company Number: PHHO2009DE03059

PATIENT
  Sex: Female

DRUGS (2)
  1. RAMIPRIL [Suspect]
     Indication: HYPERTENSION
  2. CERTICAN [Suspect]
     Indication: CONGENITAL CYSTIC KIDNEY DISEASE
     Dosage: UNK
     Dates: start: 20070828

REACTIONS (6)
  - ANGIOEDEMA [None]
  - DYSPHAGIA [None]
  - WEIGHT DECREASED [None]
  - DYSPNOEA [None]
  - ANAPHYLACTIC SHOCK [None]
  - SPEECH DISORDER [None]
